FAERS Safety Report 6334487-4 (Version None)
Quarter: 2009Q3

REPORT INFORMATION
  Report Type: 
  Country: None (occurrence: None)
  Receive Date: 20090826
  Receipt Date: 20090812
  Transmission Date: 20100115
  Serious: Yes (Death, Hospitalization)
  Sender: FDA-Public Use
  Company Number: 1-19510397

PATIENT
  Age: 65 Year
  Sex: Male
  Weight: 81.466 kg

DRUGS (8)
  1. WARFARIN SODIUM [Suspect]
     Indication: THROMBOSIS PROPHYLAXIS
     Dosage: TWICE DAILY, ORAL
     Route: 048
     Dates: start: 20090323, end: 20090327
  2. ASPIRIN [Concomitant]
  3. ISOSORBIDE DINITRATE [Concomitant]
  4. LIPITOR [Concomitant]
  5. LISINOPRIL [Concomitant]
  6. METOPROLOL [Concomitant]
  7. NITROGLYCERIN [Concomitant]
  8. LEVOXYL [Concomitant]

REACTIONS (34)
  - ACUTE MYOCARDIAL INFARCTION [None]
  - ACUTE RESPIRATORY DISTRESS SYNDROME [None]
  - ALANINE AMINOTRANSFERASE INCREASED [None]
  - ANAEMIA [None]
  - ARTERIOSCLEROSIS CORONARY ARTERY [None]
  - ASPARTATE AMINOTRANSFERASE INCREASED [None]
  - BILIRUBIN CONJUGATED INCREASED [None]
  - BLOOD ALKALINE PHOSPHATASE INCREASED [None]
  - BLOOD LACTATE DEHYDROGENASE INCREASED [None]
  - CARDIAC FAILURE [None]
  - CARDIOMYOPATHY [None]
  - FATIGUE [None]
  - GENERAL PHYSICAL HEALTH DETERIORATION [None]
  - HAEMOPTYSIS [None]
  - ILEUS [None]
  - ISCHAEMIC HEPATITIS [None]
  - LEFT ATRIAL DILATATION [None]
  - LEUKOCYTOSIS [None]
  - LUNG INFECTION [None]
  - LUNG INFILTRATION [None]
  - MALNUTRITION [None]
  - MITRAL VALVE INCOMPETENCE [None]
  - MYOCARDITIS [None]
  - PLEURAL EFFUSION [None]
  - PNEUMONIA [None]
  - PULMONARY CONGESTION [None]
  - PULMONARY OEDEMA [None]
  - PULMONARY VALVE INCOMPETENCE [None]
  - PYREXIA [None]
  - RENAL FAILURE ACUTE [None]
  - RESPIRATORY FAILURE [None]
  - SEPSIS [None]
  - TRICUSPID VALVE INCOMPETENCE [None]
  - URINARY TRACT INFECTION [None]
